FAERS Safety Report 6214951-9 (Version None)
Quarter: 2009Q2

REPORT INFORMATION
  Report Type: 
  Country: None (occurrence: None)
  Receive Date: 20090604
  Receipt Date: 20090529
  Transmission Date: 20091009
  Serious: Yes (Life-Threatening, Disabling)
  Sender: FDA-Public Use
  Company Number: US-MERCK-0906USA00024

PATIENT
  Age: 37 Year
  Sex: Male

DRUGS (2)
  1. COZAAR [Suspect]
     Indication: RENAL HYPERTENSION
     Route: 048
     Dates: start: 20090401
  2. ALLOPURINOL [Concomitant]
     Route: 065

REACTIONS (1)
  - PROTEINURIA [None]
